FAERS Safety Report 10457440 (Version 1)
Quarter: 2014Q3

REPORT INFORMATION
  Report Type: Spontaneous
  Country: FR (occurrence: FR)
  Receive Date: 20140916
  Receipt Date: 20140916
  Transmission Date: 20150326
  Serious: Yes (Hospitalization, Other)
  Sender: FDA-Public Use
  Company Number: FR-BRISTOL-MYERS SQUIBB COMPANY-21375449

PATIENT
  Age: 83 Year
  Sex: Female

DRUGS (6)
  1. COUMADIN [Suspect]
     Active Substance: WARFARIN SODIUM
     Dosage: PREVIOUSLY 2MG
     Route: 048
     Dates: start: 20140613, end: 20140616
  2. LYRICA [Concomitant]
     Active Substance: PREGABALIN
  3. INNOHEP [Concomitant]
     Active Substance: TINZAPARIN SODIUM
  4. FUNGIZONE [Concomitant]
     Active Substance: AMPHOTERICIN B
  5. TOPALGIC [Interacting]
     Active Substance: TRAMADOL
     Dosage: PREVIOUSLY 2*50MG DAILY?INCREASED TO 350 MG/DAILY
     Route: 048
     Dates: start: 20140613
  6. TOPALGIC LP [Interacting]
     Active Substance: TRAMADOL
     Dosage: 1DF:100MG EXTENDED RELEASE TABLETS
     Route: 048
     Dates: start: 20140614

REACTIONS (3)
  - Drug administration error [Unknown]
  - International normalised ratio increased [Recovered/Resolved]
  - Drug interaction [Unknown]

NARRATIVE: CASE EVENT DATE: 20140616
